FAERS Safety Report 9679311 (Version 1)
Quarter: 2013Q4

REPORT INFORMATION
  Report Type: Spontaneous
  Country: US (occurrence: US)
  Receive Date: 20131109
  Receipt Date: 20131109
  Transmission Date: 20140711
  Serious: No
  Sender: FDA-Public Use
  Company Number: US-SANOFI-AVENTIS-2012SA088516

PATIENT
  Sex: Female

DRUGS (3)
  1. ALLEGRA-D [Suspect]
     Route: 048
     Dates: start: 201211
  2. TYLENOL [Concomitant]
     Dates: start: 201211
  3. ULTRACET [Concomitant]
     Dates: start: 201211

REACTIONS (1)
  - Insomnia [Unknown]
